FAERS Safety Report 9722463 (Version 3)
Quarter: 2013Q4

REPORT INFORMATION
  Report Type: Spontaneous
  Country: DE (occurrence: DE)
  Receive Date: 20131202
  Receipt Date: 20131217
  Transmission Date: 20140711
  Serious: Yes (Death, Life-Threatening, Hospitalization, Other)
  Sender: FDA-Public Use
  Company Number: DE-009507513-1311DEU011524

PATIENT
  Age: 64 Year
  Sex: Male
  Weight: 90 kg

DRUGS (8)
  1. ISENTRESS [Suspect]
     Indication: HIV INFECTION
     Dosage: 2 DF, UNK
     Route: 048
     Dates: start: 20131001, end: 20131022
  2. TRUVADA [Suspect]
     Indication: HIV INFECTION
     Dosage: 1 DF, UNK
     Route: 048
     Dates: start: 20131001, end: 20131022
  3. COTRIM FORTE [Concomitant]
     Dosage: UNK
     Dates: start: 20131001, end: 20131022
  4. AMPHO MORONAL [Concomitant]
     Route: 048
  5. DEKRISTOL [Concomitant]
     Dosage: UNK
     Route: 048
     Dates: start: 20131001, end: 20131022
  6. IMMUNATE [Concomitant]
  7. ELIDEL [Concomitant]
  8. CIPRO (CIPROFLOXACIN) [Concomitant]
     Dosage: UNK
     Dates: start: 20131020

REACTIONS (9)
  - Organ failure [Fatal]
  - Lactic acidosis [Fatal]
  - Feeling abnormal [Unknown]
  - Eating disorder [Unknown]
  - Polydipsia [Unknown]
  - Dysuria [Unknown]
  - Body temperature decreased [Unknown]
  - Cold sweat [Unknown]
  - Feeling hot [Unknown]
